FAERS Safety Report 10357410 (Version 3)
Quarter: 2014Q4

REPORT INFORMATION
  Report Type: Spontaneous
  Country: JP (occurrence: JP)
  Receive Date: 20140801
  Receipt Date: 20141014
  Transmission Date: 20150528
  Serious: Yes (Hospitalization)
  Sender: FDA-Public Use
  Company Number: PHJP2014JP001010

PATIENT
  Age: 7 Year
  Sex: Female

DRUGS (1)
  1. TEGRETOL [Suspect]
     Active Substance: CARBAMAZEPINE
     Indication: EPILEPSY
     Dosage: 150 MG, DAILY
     Route: 048
     Dates: start: 2010, end: 20140729

REACTIONS (2)
  - Blood immunoglobulin A decreased [Not Recovered/Not Resolved]
  - Mumps [Recovering/Resolving]
